FAERS Safety Report 13395611 (Version 2)
Quarter: 2017Q2

REPORT INFORMATION
  Report Type: Report from Study
  Country: US (occurrence: US)
  Receive Date: 20170403
  Receipt Date: 20170411
  Transmission Date: 20170830
  Serious: Yes (Other)
  Sender: FDA-Public Use
  Company Number: US-BAXALTA-2017BLT002573

PATIENT
  Age: 63 Year
  Sex: Female
  Weight: 85.26 kg

DRUGS (1)
  1. HYQVIA [Suspect]
     Active Substance: HUMAN IMMUNOGLOBULIN G\HYALURONIDASE RECOMBINANT HUMAN
     Indication: IMMUNODEFICIENCY COMMON VARIABLE
     Dosage: 40 ML, 1X A MONTH
     Route: 058
     Dates: start: 2014

REACTIONS (1)
  - Bone infarction [Recovering/Resolving]

NARRATIVE: CASE EVENT DATE: 201610
